FAERS Safety Report 16227624 (Version 12)
Quarter: 2020Q4

REPORT INFORMATION
  Report Type: Report from Study
  Country: CA (occurrence: CA)
  Receive Date: 20190423
  Receipt Date: 20201012
  Transmission Date: 20210113
  Serious: Yes (Hospitalization, Other)
  Sender: FDA-Public Use
  Company Number: CA-MYLANLABS-2019M1034910

PATIENT
  Age: 61 Year
  Sex: Male

DRUGS (35)
  1. XOLAIR [Suspect]
     Active Substance: OMALIZUMAB
     Dosage: UNK
     Route: 058
     Dates: start: 20180214
  2. XOLAIR [Suspect]
     Active Substance: OMALIZUMAB
     Dosage: 300 MILLIGRAM, BIWEEKLY
     Route: 058
     Dates: start: 20180927
  3. XOLAIR [Suspect]
     Active Substance: OMALIZUMAB
     Dosage: 375 MILLIGRAM, BIWEEKLY
     Route: 058
     Dates: start: 20190903
  4. XOLAIR [Suspect]
     Active Substance: OMALIZUMAB
     Dosage: 300 MILLIGRAM, BIWEEKLY
     Route: 058
  5. XOLAIR [Suspect]
     Active Substance: OMALIZUMAB
     Dosage: 375 MILLIGRAM, BIWEEKLY
     Route: 058
     Dates: start: 20190321
  6. XOLAIR [Suspect]
     Active Substance: OMALIZUMAB
     Dosage: 375 MILLIGRAM, BIWEEKLY
     Route: 058
     Dates: start: 20091112
  7. XOLAIR [Suspect]
     Active Substance: OMALIZUMAB
     Dosage: 375 MILLIGRAM, BIWEEKLY
     Route: 058
     Dates: start: 20200212
  8. XOLAIR [Suspect]
     Active Substance: OMALIZUMAB
     Dosage: 375 MG, EVERY 2 WEEKS
     Route: 058
     Dates: start: 20170127
  9. TOBRAMYCIN. [Suspect]
     Active Substance: TOBRAMYCIN
     Indication: PRODUCT USED FOR UNKNOWN INDICATION
     Dosage: UNK
     Route: 065
  10. XOLAIR [Suspect]
     Active Substance: OMALIZUMAB
     Indication: BRONCHOPULMONARY ASPERGILLOSIS ALLERGIC
     Dosage: UNK, BIWEEKLY
     Route: 058
     Dates: start: 2013
  11. XOLAIR [Suspect]
     Active Substance: OMALIZUMAB
     Dosage: 375 MILLIGRAM, BIWEEKLY
     Route: 058
     Dates: start: 20190221
  12. PREDNISONE. [Concomitant]
     Active Substance: PREDNISONE
     Indication: PRODUCT USED FOR UNKNOWN INDICATION
     Dosage: 7.5 MILLIGRAM, QD
     Route: 065
  13. XOLAIR [Suspect]
     Active Substance: OMALIZUMAB
     Dosage: UNK
     Route: 058
     Dates: start: 20180301
  14. XOLAIR [Suspect]
     Active Substance: OMALIZUMAB
     Dosage: UNK
     Route: 058
     Dates: start: 201902
  15. XOLAIR [Suspect]
     Active Substance: OMALIZUMAB
     Dosage: 375 MILLIGRAM, BIWEEKLY
     Route: 058
  16. XOLAIR [Suspect]
     Active Substance: OMALIZUMAB
     Dosage: 35 MG, BIW
     Route: 058
     Dates: start: 2015
  17. ADVAIR HFA [Concomitant]
     Active Substance: FLUTICASONE PROPIONATE\SALMETEROL XINAFOATE
     Indication: PRODUCT USED FOR UNKNOWN INDICATION
     Dosage: 50 MILLIGRAM, QD (50 MG, BID)
     Route: 065
  18. VENTOLIN [Concomitant]
     Active Substance: ALBUTEROL SULFATE
     Indication: PRODUCT USED FOR UNKNOWN INDICATION
     Dosage: UNK
     Route: 065
  19. XOLAIR [Suspect]
     Active Substance: OMALIZUMAB
     Dosage: UNK
     Route: 058
     Dates: start: 20171130
  20. XOLAIR [Suspect]
     Active Substance: OMALIZUMAB
     Dosage: 375 MILLIGRAM, BIWEEKLY
     Route: 058
     Dates: start: 20181220
  21. XOLAIR [Suspect]
     Active Substance: OMALIZUMAB
     Dosage: 375 MILLIGRAM, BIWEEKLY
     Route: 058
     Dates: start: 201905
  22. XOLAIR [Suspect]
     Active Substance: OMALIZUMAB
     Dosage: 375 MILLIGRAM, BIWEEKLY
     Route: 058
     Dates: start: 20091112
  23. XOLAIR [Suspect]
     Active Substance: OMALIZUMAB
     Dosage: 375 MILLIGRAM, BIWEEKLY
     Route: 058
     Dates: start: 2015
  24. PREDNISONE. [Concomitant]
     Active Substance: PREDNISONE
     Dosage: UNK
     Route: 065
  25. XOLAIR [Suspect]
     Active Substance: OMALIZUMAB
     Indication: ASTHMA
     Dosage: 375 MILLIGRAM, BIWEEKLY
     Route: 058
     Dates: start: 20111228
  26. XOLAIR [Suspect]
     Active Substance: OMALIZUMAB
     Dosage: 375 MILLIGRAM, BIWEEKLY
     Route: 058
     Dates: start: 20190207
  27. XOLAIR [Suspect]
     Active Substance: OMALIZUMAB
     Dosage: 375 MILLIGRAM, BIWEEKLY
     Route: 058
     Dates: start: 20191126
  28. XOLAIR [Suspect]
     Active Substance: OMALIZUMAB
     Dosage: 375 MG, BIW
     Route: 058
     Dates: start: 20111228
  29. MONUROL [Suspect]
     Active Substance: FOSFOMYCIN TROMETHAMINE
     Indication: PRODUCT USED FOR UNKNOWN INDICATION
     Dosage: UNK
     Route: 065
  30. XOLAIR [Suspect]
     Active Substance: OMALIZUMAB
     Dosage: 375 MILLIGRAM, BIWEEKLY
     Route: 058
     Dates: start: 20191015
  31. XOLAIR [Suspect]
     Active Substance: OMALIZUMAB
     Dosage: 375 MILLIGRAM, BIWEEKLY
     Route: 058
     Dates: start: 20191029
  32. XOLAIR [Suspect]
     Active Substance: OMALIZUMAB
     Dosage: 375 MG, BIW
     Route: 058
     Dates: start: 20191112
  33. SINGULAIR [Concomitant]
     Active Substance: MONTELUKAST SODIUM
     Indication: PRODUCT USED FOR UNKNOWN INDICATION
     Dosage: UNK
     Route: 065
  34. XOLAIR [Suspect]
     Active Substance: OMALIZUMAB
     Dosage: UNK
     Route: 058
     Dates: start: 20200218
  35. XOLAIR [Suspect]
     Active Substance: OMALIZUMAB
     Dosage: 375 MILLIGRAM, BIWEEKLY
     Route: 058
     Dates: start: 20150130

REACTIONS (27)
  - Prostate cancer [Not Recovered/Not Resolved]
  - Eye pruritus [Unknown]
  - Eye swelling [Unknown]
  - Weight decreased [Not Recovered/Not Resolved]
  - Dry skin [Not Recovered/Not Resolved]
  - Infected dermal cyst [Not Recovered/Not Resolved]
  - Hypersensitivity [Not Recovered/Not Resolved]
  - Productive cough [Not Recovered/Not Resolved]
  - Heart rate decreased [Not Recovered/Not Resolved]
  - Device related thrombosis [Not Recovered/Not Resolved]
  - Lower respiratory tract infection [Not Recovered/Not Resolved]
  - Blood pressure systolic increased [Not Recovered/Not Resolved]
  - Aphonia [Not Recovered/Not Resolved]
  - Nephrolithiasis [Unknown]
  - Dyspnoea [Not Recovered/Not Resolved]
  - Sputum discoloured [Not Recovered/Not Resolved]
  - Malaise [Unknown]
  - Pneumonia [Not Recovered/Not Resolved]
  - Respiratory tract irritation [Not Recovered/Not Resolved]
  - Heart rate irregular [Not Recovered/Not Resolved]
  - Periorbital oedema [Not Recovered/Not Resolved]
  - Fatigue [Not Recovered/Not Resolved]
  - Pseudomonas infection [Not Recovered/Not Resolved]
  - Tooth fracture [Not Recovered/Not Resolved]
  - Erythema [Not Recovered/Not Resolved]
  - Pruritus [Not Recovered/Not Resolved]
  - Rhinorrhoea [Unknown]

NARRATIVE: CASE EVENT DATE: 201802
